FAERS Safety Report 4684131-7 (Version None)
Quarter: 2005Q2

REPORT INFORMATION
  Report Type: 
  Country: None (occurrence: None)
  Receive Date: 20050527
  Receipt Date: 20040612
  Transmission Date: 20051028
  Serious: Yes (Hospitalization)
  Sender: FDA-Public Use
  Company Number: 2004022857

PATIENT
  Age: 23 Year
  Sex: Female

DRUGS (5)
  1. VIRACEPT [Suspect]
     Indication: HIV INFECTION
     Dosage: 2500 MG (1250 MG, 1 IN 2 D), ORAL
     Route: 048
     Dates: start: 20040325, end: 20040327
  2. VIRACEPT [Suspect]
     Indication: PREGNANCY
     Dosage: 2500 MG (1250 MG, 1 IN 2 D), ORAL
     Route: 048
     Dates: start: 20040325, end: 20040327
  3. LAMIVUDINE AND ZIDOVUDINE [Suspect]
     Indication: HIV INFECTION
     Dosage: (1 IN 2 D), ORAL
     Route: 048
     Dates: start: 20040325, end: 20040327
  4. LAMIVUDINE AND ZIDOVUDINE [Suspect]
     Indication: PREGNANCY
     Dosage: (1 IN 2 D), ORAL
     Route: 048
     Dates: start: 20040325, end: 20040327
  5. ZIDOVUDINE [Concomitant]

REACTIONS (2)
  - OEDEMA [None]
  - RASH [None]
